FAERS Safety Report 8210641-1 (Version None)
Quarter: 2012Q1

REPORT INFORMATION
  Report Type: 
  Country: None (occurrence: None)
  Receive Date: 20120314
  Receipt Date: 20120308
  Transmission Date: 20120608
  Serious: Yes (Other)
  Sender: FDA-Public Use
  Company Number: JP-MERCK-1202USA02844

PATIENT
  Age: 48 Year
  Sex: Female

DRUGS (2)
  1. METFORMIN HYDROCHLORIDE [Concomitant]
     Route: 065
     Dates: start: 20091201
  2. JANUVIA [Suspect]
     Indication: TYPE 2 DIABETES MELLITUS
     Route: 048
     Dates: start: 20110328

REACTIONS (1)
  - UTERINE CANCER [None]
